FAERS Safety Report 23942792 (Version 1)
Quarter: 2024Q2

REPORT INFORMATION
  Report Type: Spontaneous
  Country: US (occurrence: None)
  Receive Date: 20240605
  Receipt Date: 20240605
  Transmission Date: 20240716
  Serious: Yes (Hospitalization)
  Sender: FDA-Public Use
  Company Number: None

PATIENT
  Age: 62 Year
  Sex: Female
  Weight: 63 kg

DRUGS (2)
  1. PERTUZUMAB [Suspect]
     Active Substance: PERTUZUMAB
     Dates: end: 20240102
  2. TRASTUZUMAB [Suspect]
     Active Substance: TRASTUZUMAB
     Dates: end: 20240102

REACTIONS (5)
  - Nasal congestion [None]
  - Upper-airway cough syndrome [None]
  - Dyspnoea [None]
  - Vomiting [None]
  - Abdominal pain [None]

NARRATIVE: CASE EVENT DATE: 20240531
